FAERS Safety Report 12124022 (Version 1)
Quarter: 2016Q1

REPORT INFORMATION
  Report Type: Spontaneous
  Country: US (occurrence: None)
  Receive Date: 20160226
  Receipt Date: 20160226
  Transmission Date: 20160526
  Serious: Yes (Other)
  Sender: FDA-Public Use
  Company Number: None

PATIENT
  Age: 35 Year
  Sex: Female
  Weight: 74.84 kg

DRUGS (1)
  1. BUPROPION 300 MG BUPROPION [Suspect]
     Active Substance: BUPROPION
     Indication: ANXIETY
     Dosage: 1 PILL, ONCE DAILY, TAKEN BY MOUTH
     Dates: start: 20150731, end: 20160224

REACTIONS (1)
  - Alopecia [None]

NARRATIVE: CASE EVENT DATE: 20160223
